FAERS Safety Report 10231800 (Version 2)
Quarter: 2014Q2

REPORT INFORMATION
  Report Type: Report from Study
  Country: US (occurrence: US)
  Receive Date: 20140612
  Receipt Date: 20140612
  Transmission Date: 20141212
  Serious: Yes (Other)
  Sender: FDA-Public Use
  Company Number: US-ROCHE-646394

PATIENT
  Age: 46 Year
  Sex: 0

DRUGS (2)
  1. BEVACIZUMAB [Suspect]
     Indication: MALIGNANT MELANOMA
     Dosage: DATE LAST INFUSION PRIOR TO EVENT: 8/JUN/2009.
     Route: 042
     Dates: start: 20090427
  2. DIFFLAM [Concomitant]
     Route: 065
     Dates: start: 20090508

REACTIONS (1)
  - Mucosal inflammation [Recovered/Resolved]
